FAERS Safety Report 18783897 (Version 1)
Quarter: 2021Q1

REPORT INFORMATION
  Report Type: Spontaneous
  Country: CA (occurrence: CA)
  Receive Date: 20210125
  Receipt Date: 20210125
  Transmission Date: 20210419
  Serious: Yes (Hospitalization, Other)
  Sender: FDA-Public Use
  Company Number: CA-GLAXOSMITHKLINE-CA2021GSK016436

PATIENT
  Sex: Male

DRUGS (1)
  1. AVANDIA [Suspect]
     Active Substance: ROSIGLITAZONE MALEATE
     Indication: DIABETES MELLITUS
     Dosage: UNK
     Route: 048
     Dates: start: 20080102, end: 20100104

REACTIONS (6)
  - Coronary arterial stent insertion [Unknown]
  - Acute myocardial infarction [Unknown]
  - Coronary artery disease [Unknown]
  - Cardiac disorder [Unknown]
  - Coronary angioplasty [Unknown]
  - Angina pectoris [Unknown]
